FAERS Safety Report 9257642 (Version 3)
Quarter: 2013Q3

REPORT INFORMATION
  Report Type: Spontaneous
  Country: US (occurrence: US)
  Receive Date: 20130426
  Receipt Date: 20130812
  Transmission Date: 20140515
  Serious: Yes (Hospitalization)
  Sender: FDA-Public Use
  Company Number: US-ASTRAZENECA-2013SE27778

PATIENT
  Age: 54 Year
  Sex: Male
  Weight: 83.9 kg

DRUGS (34)
  1. NEXIUM [Suspect]
     Indication: GASTROOESOPHAGEAL REFLUX DISEASE
     Route: 048
     Dates: start: 2005, end: 2012
  2. NEXIUM [Suspect]
     Indication: BARRETT^S OESOPHAGUS
     Route: 048
     Dates: start: 2005, end: 2012
  3. NEXIUM [Suspect]
     Indication: GASTROOESOPHAGEAL REFLUX DISEASE
     Route: 048
     Dates: start: 2006, end: 20111003
  4. NEXIUM [Suspect]
     Indication: BARRETT^S OESOPHAGUS
     Route: 048
     Dates: start: 2006, end: 20111003
  5. NEXIUM [Suspect]
     Indication: GASTROOESOPHAGEAL REFLUX DISEASE
     Route: 048
     Dates: start: 20070408
  6. NEXIUM [Suspect]
     Indication: BARRETT^S OESOPHAGUS
     Route: 048
     Dates: start: 20070408
  7. NEXIUM [Suspect]
     Indication: GASTROOESOPHAGEAL REFLUX DISEASE
     Route: 048
     Dates: start: 2009, end: 2012
  8. NEXIUM [Suspect]
     Indication: BARRETT^S OESOPHAGUS
     Route: 048
     Dates: start: 2009, end: 2012
  9. OMEPRAZOLE [Suspect]
     Indication: GASTROOESOPHAGEAL REFLUX DISEASE
     Route: 048
     Dates: start: 20050926
  10. OMEPRAZOLE [Suspect]
     Indication: BARRETT^S OESOPHAGUS
     Route: 048
     Dates: start: 20050926
  11. OMEPRAZOLE [Suspect]
     Indication: GASTROOESOPHAGEAL REFLUX DISEASE
     Route: 048
     Dates: start: 201208, end: 201211
  12. OMEPRAZOLE [Suspect]
     Indication: BARRETT^S OESOPHAGUS
     Route: 048
     Dates: start: 201208, end: 201211
  13. OMEPRAZOLE [Suspect]
     Indication: GASTROOESOPHAGEAL REFLUX DISEASE
     Route: 048
     Dates: start: 20120817
  14. OMEPRAZOLE [Suspect]
     Indication: BARRETT^S OESOPHAGUS
     Route: 048
     Dates: start: 20120817
  15. PANTOPRAZOLE [Concomitant]
     Indication: GASTROOESOPHAGEAL REFLUX DISEASE
     Dates: start: 201302
  16. PANTOPRAZOLE [Concomitant]
     Indication: BARRETT^S OESOPHAGUS
     Dates: start: 201302
  17. LISINOPRIL [Concomitant]
     Indication: HYPERTENSION
  18. SIMVASTATIN [Concomitant]
     Indication: BLOOD CHOLESTEROL INCREASED
  19. OXYCODONE [Concomitant]
     Indication: PAIN
  20. HYDROCODONE [Concomitant]
     Indication: PAIN
  21. GABAPENTIN [Concomitant]
     Indication: NEURALGIA
  22. METHYL PREDNISONE [Concomitant]
     Indication: ANALGESIC INTERVENTION SUPPORTIVE THERAPY
  23. AMITIZA [Concomitant]
     Indication: IRRITABLE BOWEL SYNDROME
  24. BENICAR [Concomitant]
     Indication: IRRITABLE BOWEL SYNDROME
  25. BELLADONA [Concomitant]
     Indication: MUSCLE SPASMS
  26. BACLOFEN [Concomitant]
     Indication: MUSCLE SPASTICITY
  27. NITRO-BID [Concomitant]
     Indication: ANORECTAL DISORDER
  28. MELOXICAM [Concomitant]
     Indication: ANALGESIC INTERVENTION SUPPORTIVE THERAPY
  29. TRAMADOL [Concomitant]
     Indication: PAIN
  30. BUPROPION [Concomitant]
     Indication: EX-TOBACCO USER
  31. PLAVIX [Concomitant]
     Indication: ANTICOAGULANT THERAPY
  32. PRISTIQ [Concomitant]
     Indication: DEPRESSION
  33. LEXAPRO [Concomitant]
     Indication: DEPRESSION
  34. NORTRIPTYLINE [Concomitant]
     Indication: DEPRESSION

REACTIONS (23)
  - Peripheral ischaemia [Unknown]
  - Peripheral vascular disorder [Unknown]
  - Thrombosis [Unknown]
  - Irritable bowel syndrome [Unknown]
  - Type 2 diabetes mellitus [Unknown]
  - Gallbladder disorder [Unknown]
  - Pain in extremity [Unknown]
  - Constipation [Unknown]
  - Diabetic neuropathy [Unknown]
  - Osteoporosis [Unknown]
  - Bone disorder [Unknown]
  - Multiple fractures [Unknown]
  - Arthritis [Unknown]
  - Osteoarthritis [Unknown]
  - Weight increased [Unknown]
  - Intervertebral disc degeneration [Unknown]
  - Intervertebral disc protrusion [Unknown]
  - Back pain [Unknown]
  - Lumbar radiculopathy [Unknown]
  - Muscle fatigue [Unknown]
  - Arthralgia [Unknown]
  - Abdominal pain [Unknown]
  - Depression [Unknown]
